FAERS Safety Report 9781023 (Version 1)
Quarter: 2013Q4

REPORT INFORMATION
  Report Type: Spontaneous
  Country: CA (occurrence: CA)
  Receive Date: 20131224
  Receipt Date: 20131224
  Transmission Date: 20140711
  Serious: Yes (Death)
  Sender: FDA-Public Use
  Company Number: CA-JNJFOC-20131212827

PATIENT
  Age: 82 Year
  Sex: Male

DRUGS (6)
  1. XARELTO [Suspect]
     Indication: PRODUCT USED FOR UNKNOWN INDICATION
     Route: 048
  2. TYLENOL [Concomitant]
     Route: 065
  3. TYLENOL W/CODEINE NO. 3 [Concomitant]
     Route: 065
  4. EFFEXOR XR [Concomitant]
     Route: 065
  5. LEVOTHYROXINE [Concomitant]
     Route: 065
  6. PARIET [Concomitant]
     Route: 065

REACTIONS (3)
  - Hydrocephalus [Fatal]
  - Hypertension [Fatal]
  - Haemorrhage intracranial [Fatal]
